FAERS Safety Report 5710077-9 (Version None)
Quarter: 2008Q2

REPORT INFORMATION
  Report Type: 
  Country: None (occurrence: None)
  Receive Date: 20080418
  Receipt Date: 20080226
  Transmission Date: 20081010
  Serious: No
  Sender: FDA-Public Use
  Company Number: US-ASTRAZENECA-2007UW22751

PATIENT
  Age: 45 Year
  Sex: Male
  Weight: 86.2 kg

DRUGS (5)
  1. METOPROLOL SUCCINATE [Suspect]
     Indication: HYPERTENSION
     Route: 048
     Dates: start: 20070903
  2. LOTREL [Concomitant]
  3. LEXAPRO [Concomitant]
  4. VYTORIN [Concomitant]
  5. IBUPROFEN [Concomitant]

REACTIONS (2)
  - HEART RATE INCREASED [None]
  - TREMOR [None]
